FAERS Safety Report 8150036 (Version 6)
Quarter: 2013Q3

REPORT INFORMATION
  Report Type: Spontaneous
  Country: US (occurrence: US)
  Receive Date: 20110922
  Receipt Date: 20130812
  Transmission Date: 20140515
  Serious: Yes (Hospitalization)
  Sender: FDA-Public Use
  Company Number: US-GLAXOSMITHKLINE-A0945477A

PATIENT
  Sex: Female
  Weight: 111.4 kg

DRUGS (1)
  1. AVANDAMET [Suspect]
     Indication: DIABETES MELLITUS
     Dosage: 2MG PER DAY
     Route: 048
     Dates: start: 20050315, end: 20101206

REACTIONS (3)
  - Cerebrovascular accident [Unknown]
  - Transient ischaemic attack [Unknown]
  - Heart injury [Unknown]
